FAERS Safety Report 25085108 (Version 1)
Quarter: 2025Q1

REPORT INFORMATION
  Report Type: Spontaneous
  Country: US (occurrence: US)
  Receive Date: 20250317
  Receipt Date: 20250317
  Transmission Date: 20250408
  Serious: No
  Sender: MYLAN
  Company Number: US-MYLANLABS-2025M1020350

PATIENT
  Sex: Female
  Weight: 67.13 kg

DRUGS (10)
  1. ESTRADIOL TRANSDERMAL SYSTEM [Suspect]
     Active Substance: ESTRADIOL
     Indication: Menopause
     Dosage: 0.05 MILLIGRAM, QD (PER DAY, TWICE WEEKLY)
  2. ESTRADIOL TRANSDERMAL SYSTEM [Suspect]
     Active Substance: ESTRADIOL
     Indication: Hormone replacement therapy
  3. CYMBALTA [Concomitant]
     Active Substance: DULOXETINE HYDROCHLORIDE
     Indication: Pain
     Dosage: 30 MILLIGRAM, PM (EVERY NIGHT)
  4. LISINOPRIL [Concomitant]
     Active Substance: LISINOPRIL
     Dosage: 5 MILLIGRAM, PM (EVERY NIGHT)
  5. VITAMIN D [Concomitant]
     Active Substance: VITAMIN D NOS
  6. LASIX [Concomitant]
     Active Substance: FUROSEMIDE
  7. XANAX [Concomitant]
     Active Substance: ALPRAZOLAM
     Indication: Muscle relaxant therapy
  8. Dim [Concomitant]
     Dosage: 1 DOSAGE FORM, QD (PER DAY)
  9. PROGESTERONE [Concomitant]
     Active Substance: PROGESTERONE
     Dosage: UNK, PM (EVERY NIGHT)
  10. ASPIRIN [Concomitant]
     Active Substance: ASPIRIN

REACTIONS (5)
  - Chest pain [Recovered/Resolved]
  - Emotional distress [Unknown]
  - Frustration tolerance decreased [Unknown]
  - Wrong technique in product usage process [Unknown]
  - Incorrect dose administered [Unknown]
